FAERS Safety Report 14872684 (Version 1)
Quarter: 2018Q2

REPORT INFORMATION
  Report Type: Spontaneous
  Country: GB (occurrence: GB)
  Receive Date: 20180510
  Receipt Date: 20180510
  Transmission Date: 20180711
  Serious: Yes (Hospitalization)
  Sender: FDA-Public Use
  Company Number: GB-SUN PHARMACEUTICAL INDUSTRIES LTD-2018RR-172331

PATIENT
  Age: 20 Year
  Sex: Male
  Weight: 127 kg

DRUGS (1)
  1. VENLAFAXINE [Suspect]
     Active Substance: VENLAFAXINE HYDROCHLORIDE
     Indication: DEPRESSION
     Dosage: 225 REDUCED TO 37.5 FOR LAST COUPLE OF MONTHS
     Route: 048
     Dates: start: 201704, end: 20180302

REACTIONS (6)
  - Aggression [Recovered/Resolved]
  - Personality change [Unknown]
  - Inappropriate affect [Unknown]
  - Psychotic disorder [Recovered/Resolved]
  - Anger [Recovering/Resolving]
  - Insomnia [Recovering/Resolving]

NARRATIVE: CASE EVENT DATE: 201704
